FAERS Safety Report 21390432 (Version 1)
Quarter: 2022Q3

REPORT INFORMATION
  Report Type: Spontaneous
  Country: US (occurrence: US)
  Receive Date: 20220929
  Receipt Date: 20220929
  Transmission Date: 20221027
  Serious: Yes (Hospitalization)
  Sender: FDA-Public Use
  Company Number: US-009507513-2209USA010144

PATIENT
  Sex: Female

DRUGS (2)
  1. BELSOMRA [Suspect]
     Active Substance: SUVOREXANT
     Indication: Sleep disorder therapy
     Dosage: QUANTITY: 1
     Route: 048
  2. LYRICA [Concomitant]
     Active Substance: PREGABALIN

REACTIONS (1)
  - Adverse event [Unknown]
